FAERS Safety Report 5560171-0 (Version None)
Quarter: 2007Q4

REPORT INFORMATION
  Report Type: 
  Country: None (occurrence: None)
  Receive Date: 20071214
  Receipt Date: 20071022
  Transmission Date: 20080405
  Serious: No
  Sender: FDA-Public Use
  Company Number: US-ABBOTT-07P-163-0422076-00

PATIENT
  Sex: Male
  Weight: 76.726 kg

DRUGS (10)
  1. HUMIRA [Suspect]
     Indication: CROHN'S DISEASE
     Route: 058
     Dates: start: 20070618
  2. M.V.I. [Concomitant]
     Indication: VITAMIN SUPPLEMENTATION
     Route: 048
  3. VIT D [Concomitant]
     Indication: VITAMIN SUPPLEMENTATION
  4. CALCIUM [Concomitant]
     Indication: VITAMIN SUPPLEMENTATION
  5. IMODIUM [Concomitant]
     Indication: DIARRHOEA
     Route: 048
  6. AZATHIOPRINE [Concomitant]
     Indication: CROHN'S DISEASE
     Route: 048
  7. PENTAZA [Concomitant]
     Indication: CROHN'S DISEASE
     Route: 048
  8. TYLOX [Concomitant]
     Indication: ARTHRALGIA
     Route: 048
  9. TYLOX [Concomitant]
     Indication: ABDOMINAL PAIN
  10. VIT B 12 [Concomitant]
     Indication: MALABSORPTION
     Route: 030

REACTIONS (5)
  - ANXIETY [None]
  - ASTHENIA [None]
  - FATIGUE [None]
  - MENTAL STATUS CHANGES [None]
  - PANIC ATTACK [None]
